FAERS Safety Report 8920221 (Version 11)
Quarter: 2013Q2

REPORT INFORMATION
  Report Type: Spontaneous
  Country: US (occurrence: US)
  Receive Date: 20121122
  Receipt Date: 20130626
  Transmission Date: 20140414
  Serious: Yes (Other)
  Sender: FDA-Public Use
  Company Number: US-009507513-1211USA005395

PATIENT
  Age: 54 Year
  Sex: Female
  Weight: 110.66 kg

DRUGS (8)
  1. PEGINTRON [Suspect]
     Indication: HEPATITIS C
     Dosage: 150 MICROGRAM, QW, PEGINTRON REDIPEN
     Route: 058
     Dates: start: 20121109, end: 20130410
  2. REBETOL [Suspect]
     Indication: HEPATITIS C
     Dosage: 1400MG DAILY
     Route: 048
     Dates: start: 20121109, end: 20130327
  3. REBETOL [Suspect]
     Dosage: 1000MG DAILY
     Route: 048
     Dates: start: 20130327, end: 20130410
  4. VICTRELIS [Suspect]
     Indication: HEPATITIS C
     Dosage: 800 MG, TID
     Route: 048
     Dates: start: 20121211, end: 20130410
  5. ASPIRIN [Concomitant]
     Dosage: 81 MG, CHRONICALLY
  6. HYDROCHLOROTHIAZIDE [Concomitant]
     Dosage: 12.5 MG CHRONICALLY
  7. WELLBUTRIN [Concomitant]
     Dosage: 300MG, CHRONICALLY
  8. LAMOTRIGINE [Concomitant]
     Dosage: 100MG CHRONICALLY

REACTIONS (83)
  - Dehydration [Not Recovered/Not Resolved]
  - Fatigue [Unknown]
  - Dyspnoea [Unknown]
  - Depression [Not Recovered/Not Resolved]
  - Feeding disorder [Not Recovered/Not Resolved]
  - Mental status changes [Unknown]
  - Mood swings [Unknown]
  - Confusional state [Not Recovered/Not Resolved]
  - Eye pain [Unknown]
  - Photophobia [Unknown]
  - Anger [Unknown]
  - Vomiting [Unknown]
  - Injection site erythema [Unknown]
  - Influenza like illness [Unknown]
  - Hot flush [Unknown]
  - Tremor [Unknown]
  - Memory impairment [Unknown]
  - Insomnia [Unknown]
  - Pollakiuria [Unknown]
  - Vision blurred [Unknown]
  - Constipation [Unknown]
  - Eye pain [Unknown]
  - Vision blurred [Unknown]
  - Dysphagia [Unknown]
  - Red blood cell count decreased [Unknown]
  - Apathy [Unknown]
  - Hepatomegaly [Unknown]
  - Weight increased [Not Recovered/Not Resolved]
  - Dysgeusia [Not Recovered/Not Resolved]
  - Anaemia [Not Recovered/Not Resolved]
  - Dysphagia [Unknown]
  - Dysgeusia [Not Recovered/Not Resolved]
  - Memory impairment [Unknown]
  - Bronchitis [Unknown]
  - Mental status changes [Unknown]
  - Pain [Unknown]
  - Somnolence [Unknown]
  - Hair texture abnormal [Unknown]
  - Alopecia [Unknown]
  - Dysgeusia [Unknown]
  - Anaemia [Not Recovered/Not Resolved]
  - Drug ineffective [Unknown]
  - Chills [Unknown]
  - Irritability [Not Recovered/Not Resolved]
  - Influenza like illness [Unknown]
  - Headache [Unknown]
  - Dizziness [Unknown]
  - Dry skin [Unknown]
  - Urticaria [Unknown]
  - Pruritus [Unknown]
  - Malaise [Unknown]
  - Stomatitis [Unknown]
  - Dry skin [Unknown]
  - Pruritus [Unknown]
  - Fatigue [Not Recovered/Not Resolved]
  - Asthenia [Unknown]
  - Dyspnoea [Not Recovered/Not Resolved]
  - Sinusitis [Unknown]
  - Headache [Unknown]
  - Nausea [Not Recovered/Not Resolved]
  - Dyspnoea [Not Recovered/Not Resolved]
  - Dizziness [Unknown]
  - Skin odour abnormal [Unknown]
  - Dyspepsia [Unknown]
  - Headache [Unknown]
  - Irritability [Not Recovered/Not Resolved]
  - Asthenia [Unknown]
  - Dyspnoea [Not Recovered/Not Resolved]
  - Injection site reaction [Unknown]
  - Dizziness [Unknown]
  - Dyspnoea [Not Recovered/Not Resolved]
  - Fatigue [Not Recovered/Not Resolved]
  - Nausea [Not Recovered/Not Resolved]
  - Irritability [Not Recovered/Not Resolved]
  - Injection site reaction [Unknown]
  - Oedema [Unknown]
  - Decreased appetite [Not Recovered/Not Resolved]
  - Cough [Unknown]
  - Influenza like illness [Unknown]
  - Bacterial infection [Unknown]
  - Haemoglobin decreased [Unknown]
  - Leukopenia [Unknown]
  - White blood cell count decreased [Unknown]
